FAERS Safety Report 8032341-3 (Version None)
Quarter: 2012Q1

REPORT INFORMATION
  Report Type: 
  Country: None (occurrence: None)
  Receive Date: 20120109
  Receipt Date: 20120109
  Transmission Date: 20120608
  Serious: Yes (Hospitalization)
  Sender: FDA-Public Use
  Company Number: None

PATIENT
  Age: 71 Year
  Sex: Male
  Weight: 85.3 kg

DRUGS (1)
  1. ISONIAZID [Suspect]
     Dosage: 300 MG EVERY DAY PO
     Route: 048
     Dates: start: 20111028, end: 20111106

REACTIONS (9)
  - DISORIENTATION [None]
  - WHITE BLOOD CELL COUNT INCREASED [None]
  - LIVER FUNCTION TEST ABNORMAL [None]
  - FALL [None]
  - HYPOTENSION [None]
  - BLOOD UREA INCREASED [None]
  - BLOOD CREATININE INCREASED [None]
  - MENTAL STATUS CHANGES [None]
  - LETHARGY [None]
